FAERS Safety Report 17794789 (Version 1)
Quarter: 2020Q2

REPORT INFORMATION
  Report Type: Spontaneous
  Country: AR (occurrence: AR)
  Receive Date: 20200515
  Receipt Date: 20200515
  Transmission Date: 20200714
  Serious: Yes (Other)
  Sender: FDA-Public Use
  Company Number: AR-ASTRAZENECA-2020SE63763

PATIENT
  Sex: Female

DRUGS (2)
  1. MONTELUKAST [Concomitant]
     Active Substance: MONTELUKAST SODIUM
     Dosage: 10 MG
  2. FREVIA [Suspect]
     Active Substance: BUDESONIDE\FORMOTEROL
     Dosage: 160/4,5 UNKNOWN
     Route: 055

REACTIONS (2)
  - Asthmatic crisis [Unknown]
  - Asthma [Unknown]
